FAERS Safety Report 11048735 (Version 1)
Quarter: 2015Q2

REPORT INFORMATION
  Report Type: Spontaneous
  Country: TR (occurrence: TR)
  Receive Date: 20150420
  Receipt Date: 20150420
  Transmission Date: 20150821
  Serious: Yes (Hospitalization)
  Sender: FDA-Public Use
  Company Number: TR-CIPLA LTD.-2015AU03064

PATIENT

DRUGS (1)
  1. TERBINAFINE [Suspect]
     Active Substance: TERBINAFINE

REACTIONS (7)
  - Aspergillus infection [Unknown]
  - Aplastic anaemia [Recovered/Resolved]
  - Nausea [Unknown]
  - Anal abscess [Unknown]
  - Herpes zoster [Unknown]
  - Device related infection [Unknown]
  - Vaginal haemorrhage [Unknown]

NARRATIVE: CASE EVENT DATE: 201104
